FAERS Safety Report 5813316-9 (Version None)
Quarter: 2008Q3

REPORT INFORMATION
  Report Type: 
  Country: None (occurrence: None)
  Receive Date: 20080717
  Receipt Date: 20080715
  Transmission Date: 20090109
  Serious: Yes (Hospitalization)
  Sender: FDA-Public Use
  Company Number: A0706353A

PATIENT
  Age: 46 Year
  Sex: Female

DRUGS (5)
  1. ALLI [Suspect]
     Indication: WEIGHT LOSS DIET
     Route: 048
     Dates: start: 20071101, end: 20080101
  2. AMPICILLIN [Suspect]
     Indication: DRUG USE FOR UNKNOWN INDICATION
     Route: 065
  3. ANTIBIOTICS [Suspect]
     Route: 065
  4. RIFAMPIN [Concomitant]
  5. AVELOX [Concomitant]

REACTIONS (9)
  - ABDOMINAL PAIN UPPER [None]
  - BRONCHITIS [None]
  - DRUG INTERACTION [None]
  - ERYTHEMA [None]
  - FOOD CRAVING [None]
  - INCISION SITE COMPLICATION [None]
  - INCISION SITE PAIN [None]
  - PYREXIA [None]
  - STAPHYLOCOCCAL INFECTION [None]
